FAERS Safety Report 5153888-3 (Version None)
Quarter: 2006Q4

REPORT INFORMATION
  Report Type: 
  Country: None (occurrence: None)
  Receive Date: 20061120
  Receipt Date: 20060623
  Transmission Date: 20070319
  Serious: Yes (Hospitalization)
  Sender: FDA-Public Use
  Company Number: HQWYE420527JUN06

PATIENT
  Sex: Female

DRUGS (7)
  1. ENBREL [Suspect]
     Indication: RHEUMATOID ARTHRITIS
     Route: 058
     Dates: start: 20060510, end: 20060606
  2. RHEUMATREX [Suspect]
     Indication: RHEUMATOID ARTHRITIS
     Dosage: UNKNOWN
     Route: 048
     Dates: end: 20060606
  3. LANSOPRAZOLE [Concomitant]
     Route: 048
  4. OZEX [Concomitant]
     Route: 048
     Dates: end: 20060622
  5. LOXONIN [Concomitant]
     Indication: RHEUMATOID ARTHRITIS
     Route: 048
  6. SOLON [Concomitant]
  7. FOLIAMIN [Concomitant]
     Dosage: UNKNOWN
     Route: 048
     Dates: end: 20060606

REACTIONS (12)
  - BLISTER [None]
  - BLOOD BETA-D-GLUCAN INCREASED [None]
  - BLOOD LACTATE DEHYDROGENASE INCREASED [None]
  - CONVULSION [None]
  - ENCEPHALOPATHY [None]
  - HERPES ZOSTER [None]
  - NAUSEA [None]
  - NUCLEAR MAGNETIC RESONANCE IMAGING BRAIN ABNORMAL [None]
  - PNEUMOCYSTIS JIROVECI PNEUMONIA [None]
  - PRURITUS [None]
  - VOMITING [None]
  - WHITE BLOOD CELL COUNT DECREASED [None]
